FAERS Safety Report 4330729-5 (Version None)
Quarter: 2004Q1

REPORT INFORMATION
  Report Type: 
  Country: None (occurrence: None)
  Receive Date: 20040331
  Receipt Date: 20040319
  Transmission Date: 20041129
  Serious: Yes (Hospitalization, Disabling)
  Sender: FDA-Public Use
  Company Number: HQWYE846005FEB04

PATIENT
  Age: 58 Year
  Sex: Female

DRUGS (4)
  1. NEORAL [Suspect]
     Indication: PROPHYLAXIS AGAINST TRANSPLANT REJECTION
     Dosage: SEE IMAGE
     Route: 048
     Dates: start: 20031015, end: 20040101
  2. NEORAL [Suspect]
     Indication: PROPHYLAXIS AGAINST TRANSPLANT REJECTION
     Dosage: SEE IMAGE
     Route: 048
     Dates: start: 20040101, end: 20040225
  3. . [Concomitant]
  4. CORTICOSTEROID NOS (CORTICOSTEROID NOS, ) [Suspect]

REACTIONS (5)
  - BLOOD CREATININE INCREASED [None]
  - IMMUNOSUPPRESSION [None]
  - OSTEONECROSIS [None]
  - PAIN [None]
  - REFLEX SYMPATHETIC DYSTROPHY [None]
